FAERS Safety Report 9963839 (Version 1)
Quarter: 2014Q1

REPORT INFORMATION
  Report Type: Spontaneous
  Country: GB (occurrence: GB)
  Receive Date: 20140305
  Receipt Date: 20140305
  Transmission Date: 20141002
  Serious: Yes (Other)
  Sender: FDA-Public Use
  Company Number: PHHY2014GB023057

PATIENT
  Age: 66 Year
  Sex: Male
  Weight: 115 kg

DRUGS (6)
  1. BISOPROLOL [Suspect]
     Route: 048
     Dates: start: 20140123, end: 20140213
  2. DUTASTERIDE [Concomitant]
     Dates: start: 20131114, end: 20140206
  3. LISINOPRIL [Concomitant]
     Dates: start: 20131031, end: 20140206
  4. SILDENAFIL [Concomitant]
     Dates: start: 20131114, end: 20131212
  5. SIMVASTATIN [Concomitant]
     Dates: start: 20131114, end: 20140206
  6. TAMSULOSIN HYDROCHLORIDE [Concomitant]
     Dates: start: 20131015, end: 20140208

REACTIONS (1)
  - Muscular weakness [Unknown]
